FAERS Safety Report 5629673-2 (Version None)
Quarter: 2008Q1

REPORT INFORMATION
  Report Type: 
  Country: None (occurrence: None)
  Receive Date: 20080218
  Receipt Date: 20080213
  Transmission Date: 20080703
  Serious: Yes (Hospitalization)
  Sender: FDA-Public Use
  Company Number: B0507530A

PATIENT
  Age: 56 Year
  Sex: Female

DRUGS (2)
  1. LAPATINIB [Suspect]
     Route: 048
     Dates: start: 20080206
  2. CAPECITABINE [Suspect]
     Route: 048
     Dates: start: 20080206

REACTIONS (2)
  - HYPOTENSION [None]
  - INFECTION [None]
